FAERS Safety Report 7988890-7 (Version None)
Quarter: 2011Q4

REPORT INFORMATION
  Report Type: 
  Country: None (occurrence: None)
  Receive Date: 20111219
  Receipt Date: 20111207
  Transmission Date: 20120403
  Serious: Yes (Hospitalization)
  Sender: FDA-Public Use
  Company Number: DE-ELI_LILLY_AND_COMPANY-DE201112001665

PATIENT
  Age: 69 Year
  Sex: Female

DRUGS (5)
  1. CALCIUM [Concomitant]
  2. PREDNISOLONE [Concomitant]
  3. FORTEO [Suspect]
     Indication: OSTEOPOROSIS
     Dosage: UNK, QD
     Route: 058
     Dates: start: 20100917
  4. DICLOFENAC [Concomitant]
  5. VITAMIN D [Concomitant]

REACTIONS (1)
  - PAIN IN EXTREMITY [None]
